FAERS Safety Report 13680176 (Version 3)
Quarter: 2017Q4

REPORT INFORMATION
  Report Type: Spontaneous
  Country: US (occurrence: US)
  Receive Date: 20170622
  Receipt Date: 20171009
  Transmission Date: 20180320
  Serious: Yes (Hospitalization)
  Sender: FDA-Public Use
  Company Number: US-ACTELION-A-US2017-155710

PATIENT
  Age: 28 Year
  Sex: Female

DRUGS (7)
  1. FUROSEMIDE. [Concomitant]
     Active Substance: FUROSEMIDE
  2. OPSUMIT [Suspect]
     Active Substance: MACITENTAN
     Indication: PULMONARY ARTERIAL HYPERTENSION
     Dosage: 10 MG, QD
     Route: 048
     Dates: start: 201702
  3. DIAZEPAM. [Concomitant]
     Active Substance: DIAZEPAM
  4. ADCIRCA [Concomitant]
     Active Substance: TADALAFIL
  5. WELLBUTRIN [Concomitant]
     Active Substance: BUPROPION HYDROCHLORIDE
  6. ZANTAC [Concomitant]
     Active Substance: RANITIDINE HYDROCHLORIDE
  7. BUTRANS [Concomitant]
     Active Substance: BUPRENORPHINE

REACTIONS (3)
  - Depression [Unknown]
  - Drug dose omission [Unknown]
  - Oxygen consumption decreased [Recovering/Resolving]

NARRATIVE: CASE EVENT DATE: 20170927
